FAERS Safety Report 5374043-8 (Version None)
Quarter: 2007Q2

REPORT INFORMATION
  Report Type: 
  Country: None (occurrence: None)
  Receive Date: 20070627
  Receipt Date: 20070613
  Transmission Date: 20071010
  Serious: Yes (Hospitalization)
  Sender: FDA-Public Use
  Company Number: CLOF-10532

PATIENT
  Age: 9 Year
  Sex: Female
  Weight: 25.2 kg

DRUGS (36)
  1. CLOFARABINE. MFR: GENZYME [Suspect]
     Indication: ACUTE LYMPHOCYTIC LEUKAEMIA
     Dosage: 30 MG/M2 IV
     Route: 042
     Dates: start: 20051129, end: 20061206
  2. CLOFARABINE. MFR. GENZYME [Suspect]
     Indication: ACUTE LYMPHOCYTIC LEUKAEMIA
     Dosage: 20 MG/M2 IV
     Route: 042
     Dates: start: 20061226, end: 20061229
  3. CLOFARABINE. MFR: GENZYME [Suspect]
     Indication: ACUTE LYMPHOCYTIC LEUKAEMIA
     Dosage: 20 MG/M2 IV
     Route: 042
     Dates: start: 20070123, end: 20070126
  4. CLOFARABINE. MFR: GENZYME [Suspect]
     Indication: ACUTE LYMPHOCYTIC LEUKAEMIA
     Dosage: 20 MG/M2 IV
     Route: 042
     Dates: start: 20060226, end: 20060301
  5. CLOFARABINE. MFR: GENZYME [Suspect]
     Indication: ACUTE LYMPHOCYTIC LEUKAEMIA
     Dosage: 20 MG/M2 QD IV
     Route: 011
     Dates: start: 20070412, end: 20070415
  6. ETOPOSIDE [Suspect]
     Indication: ACUTE LYMPHOCYTIC LEUKAEMIA
     Dosage: 106 MG IV
     Route: 042
     Dates: start: 20061129, end: 20061206
  7. ETOPOSIDE [Suspect]
     Indication: ACUTE LYMPHOCYTIC LEUKAEMIA
     Dosage: 100 MG IV
     Route: 042
     Dates: start: 20061226, end: 20061229
  8. ETOPOSIDE [Suspect]
     Indication: ACUTE LYMPHOCYTIC LEUKAEMIA
     Dosage: 100 MG IV
     Route: 042
     Dates: start: 20070123, end: 20070126
  9. ETOPOSIDE [Suspect]
     Indication: ACUTE LYMPHOCYTIC LEUKAEMIA
     Dosage: 100 MG IV
     Route: 042
     Dates: start: 20070227, end: 20070302
  10. ETOPOSIDE [Suspect]
     Indication: ACUTE LYMPHOCYTIC LEUKAEMIA
     Dosage: 100 MG QD IV
     Route: 042
     Dates: start: 20070413, end: 20070416
  11. CYCLOPHOSPHAMIDE [Suspect]
     Indication: ACUTE LYMPHOCYTIC LEUKAEMIA
     Dosage: 470 MG IV
     Route: 042
     Dates: start: 20061129, end: 20061206
  12. CYCLOPHOSPHAMIDE [Suspect]
     Indication: ACUTE LYMPHOCYTIC LEUKAEMIA
     Dosage: 440 MG IV
     Route: 042
     Dates: start: 20061226, end: 20061229
  13. CYCLOPHOSPHAMIDE [Suspect]
     Indication: ACUTE LYMPHOCYTIC LEUKAEMIA
     Dosage: 440 MG IV
     Route: 042
     Dates: start: 20060123, end: 20060126
  14. CYCLOPHOSPHAMIDE [Suspect]
     Indication: ACUTE LYMPHOCYTIC LEUKAEMIA
     Dosage: 440 MG IV
     Route: 042
     Dates: start: 20060227, end: 20060302
  15. CYCLOPHOSPHAMIDE [Suspect]
     Indication: ACUTE LYMPHOCYTIC LEUKAEMIA
     Dosage: 470 MG QD IV
     Route: 042
     Dates: start: 20070413, end: 20070416
  16. LEVAQUIN [Concomitant]
  17. BACTRIM [Concomitant]
  18. NASONEX [Concomitant]
  19. VORICONAZOLE [Concomitant]
  20. SODIUM CHLORIDE NASAL SPRAY [Concomitant]
  21. ACETAMINOPHEN [Concomitant]
  22. MAGNESIUM HYDROXIDE TAB [Concomitant]
  23. AMIKACIN [Concomitant]
  24. CEFEPIME [Concomitant]
  25. DIPHENHYDRATE [Concomitant]
  26. DOCUSATE-SENNA [Concomitant]
  27. FLUOXETINE [Concomitant]
  28. GANCICLOVIR [Concomitant]
  29. FLUTICASONE NASAL SPRAY [Concomitant]
  30. MAGNESIUM HYDROXIDE TAB [Concomitant]
  31. MEROPENEM [Concomitant]
  32. MORPHINE [Concomitant]
  33. NYSTATIN [Concomitant]
  34. MIRALAX [Concomitant]
  35. PSEUDOEPHEDRINE HCL [Concomitant]
  36. VANCOMYCIN HCL [Concomitant]

REACTIONS (14)
  - ANOREXIA [None]
  - BK VIRUS INFECTION [None]
  - CYTOMEGALOVIRUS INFECTION [None]
  - DEPRESSION [None]
  - EPISTAXIS [None]
  - FEBRILE NEUTROPENIA [None]
  - HAEMATOCRIT DECREASED [None]
  - HAEMOGLOBIN DECREASED [None]
  - HUMAN HERPES VIRUS 6 SEROLOGY POSITIVE [None]
  - PANCREATITIS [None]
  - PLATELET COUNT DECREASED [None]
  - SINUSITIS [None]
  - URINARY TRACT INFECTION [None]
  - WEIGHT DECREASED [None]
